FAERS Safety Report 21074938 (Version 2)
Quarter: 2022Q3

REPORT INFORMATION
  Report Type: Spontaneous
  Country: US (occurrence: US)
  Receive Date: 20220713
  Receipt Date: 20220722
  Transmission Date: 20221026
  Serious: No
  Sender: FDA-Public Use
  Company Number: US-JNJFOC-20220714149

PATIENT
  Age: 67 Year
  Sex: Female
  Weight: 56.750 kg

DRUGS (4)
  1. PEPCID [Suspect]
     Active Substance: FAMOTIDINE
     Indication: Dyspepsia
     Route: 065
     Dates: start: 20220624
  2. ORENITRAM [Concomitant]
     Active Substance: TREPROSTINIL
     Indication: Pulmonary arterial hypertension
     Dosage: 0.25 MG AND 0.125 MG AND THE CURRENT DOSE WAS REPORTED AS 0.625 MG, EVERY EIGHT HOURS (Q8H), VIA ORA
     Route: 048
     Dates: start: 20210914
  3. ADEMPAS [Concomitant]
     Active Substance: RIOCIGUAT
     Indication: Product used for unknown indication
  4. TUMS [Concomitant]
     Active Substance: CALCIUM CARBONATE
     Indication: Dyspepsia
     Route: 065

REACTIONS (1)
  - Drug ineffective [Unknown]

NARRATIVE: CASE EVENT DATE: 20220624
